FAERS Safety Report 21823926 (Version 2)
Quarter: 2023Q1

REPORT INFORMATION
  Report Type: Spontaneous
  Country: US (occurrence: US)
  Receive Date: 20230105
  Receipt Date: 20230206
  Transmission Date: 20230418
  Serious: No
  Sender: FDA-Public Use
  Company Number: US-SA-SAC20230104000618

PATIENT
  Sex: Male

DRUGS (3)
  1. DUPIXENT [Suspect]
     Active Substance: DUPILUMAB
     Indication: Post inflammatory pigmentation change
     Dosage: 300 MG, QOW
     Route: 058
  2. EUCRISA [Concomitant]
     Active Substance: CRISABOROLE
     Dosage: UNK
  3. TRIAMCINOLONE [Concomitant]
     Active Substance: TRIAMCINOLONE
     Dosage: UNK

REACTIONS (9)
  - Injection site pain [Unknown]
  - Injection site pruritus [Unknown]
  - Skin weeping [Unknown]
  - Stress [Unknown]
  - Erythema [Unknown]
  - Pruritus [Unknown]
  - Dermatitis atopic [Unknown]
  - Condition aggravated [Unknown]
  - Product use in unapproved indication [Unknown]
